FAERS Safety Report 5587323-8 (Version None)
Quarter: 2008Q1

REPORT INFORMATION
  Report Type: 
  Country: None (occurrence: None)
  Receive Date: 20080110
  Receipt Date: 20080104
  Transmission Date: 20080703
  Serious: Yes (Hospitalization)
  Sender: FDA-Public Use
  Company Number: US-ELI_LILLY_AND_COMPANY-US200801000718

PATIENT
  Sex: Male

DRUGS (6)
  1. HUMALOG MIX 75/25 [Suspect]
  2. DIOVAN [Concomitant]
  3. METFORMIN HCL [Concomitant]
  4. CIALIS [Concomitant]
  5. AMLODIPINE [Concomitant]
  6. NEXIUM [Concomitant]

REACTIONS (4)
  - ABDOMINAL PAIN UPPER [None]
  - DECREASED APPETITE [None]
  - PANCREATITIS [None]
  - WEIGHT DECREASED [None]
